FAERS Safety Report 16281548 (Version 2)
Quarter: 2019Q2

REPORT INFORMATION
  Report Type: Spontaneous
  Country: AU (occurrence: AU)
  Receive Date: 20190507
  Receipt Date: 20190508
  Transmission Date: 20190711
  Serious: Yes (Death, Life-Threatening)
  Sender: FDA-Public Use
  Company Number: AU-PFIZER INC-2019187734

PATIENT
  Age: 29 Year
  Sex: Male

DRUGS (7)
  1. DEXAMETHASONE SODIUM PHOSPHATE. [Suspect]
     Active Substance: DEXAMETHASONE SODIUM PHOSPHATE
     Indication: PNEUMONIA PSEUDOMONAL
     Dosage: UNK
     Route: 042
     Dates: start: 1989
  2. CEFTAZIDIME. [Suspect]
     Active Substance: CEFTAZIDIME
     Indication: PNEUMONIA PSEUDOMONAL
     Dosage: UNK
     Route: 042
     Dates: start: 1989
  3. FLUCLOXACILLIN [Suspect]
     Active Substance: FLUCLOXACILLIN
     Indication: PNEUMONIA PSEUDOMONAL
     Dosage: UNK
     Dates: start: 198903
  4. SULFAMETHOXAZOLE/TRIMETHOPRIM [Suspect]
     Active Substance: SULFAMETHOXAZOLE\TRIMETHOPRIM
     Indication: PNEUMONIA PSEUDOMONAL
     Dosage: UNK
     Dates: start: 198903
  5. TOBRAMYCIN. [Suspect]
     Active Substance: TOBRAMYCIN
     Indication: PNEUMONIA PSEUDOMONAL
     Dosage: UNK
     Route: 042
     Dates: start: 1989
  6. CIPROFLOXACIN. [Suspect]
     Active Substance: CIPROFLOXACIN
     Indication: PNEUMONIA PSEUDOMONAL
     Dosage: UNK
     Route: 048
     Dates: start: 198903
  7. TICARCILLIN [Suspect]
     Active Substance: TICARCILLIN
     Indication: PNEUMONIA PSEUDOMONAL
     Dosage: UNK
     Route: 042
     Dates: start: 1989

REACTIONS (2)
  - Colitis [Recovered/Resolved]
  - Cystic fibrosis [Unknown]

NARRATIVE: CASE EVENT DATE: 1989
